FAERS Safety Report 25323397 (Version 1)
Quarter: 2025Q2

REPORT INFORMATION
  Report Type: Spontaneous
  Country: US (occurrence: None)
  Receive Date: 20250516
  Receipt Date: 20250516
  Transmission Date: 20250717
  Serious: Yes (Hospitalization)
  Sender: FDA-CTU
  Company Number: None

PATIENT
  Age: 69 Year
  Sex: Male
  Weight: 59 kg

DRUGS (4)
  1. FLUOROURACIL [Suspect]
     Active Substance: FLUOROURACIL
     Dates: end: 20250503
  2. LEUCOVORIN CALCIUM [Suspect]
     Active Substance: LEUCOVORIN CALCIUM
     Dates: end: 20250501
  3. NIVOLUMAB [Suspect]
     Active Substance: NIVOLUMAB
     Dates: end: 20250501
  4. ELOXATIN [Suspect]
     Active Substance: OXALIPLATIN
     Dates: end: 20250501

REACTIONS (10)
  - Biliary obstruction [None]
  - Disease progression [None]
  - Metastases to liver [None]
  - Condition aggravated [None]
  - Retroperitoneal lymphadenopathy [None]
  - Metastases to spine [None]
  - Hyponatraemia [None]
  - Urinary retention [None]
  - Orthostatic hypotension [None]
  - Rash [None]

NARRATIVE: CASE EVENT DATE: 20250507
